FAERS Safety Report 9486346 (Version 1)
Quarter: 2013Q3

REPORT INFORMATION
  Report Type: Spontaneous
  Country: US (occurrence: None)
  Receive Date: 20130827
  Receipt Date: 20130827
  Transmission Date: 20140515
  Serious: Yes (Other)
  Sender: FDA-Public Use
  Company Number: None

PATIENT
  Age: 26 Year
  Sex: Male
  Weight: 53.52 kg

DRUGS (1)
  1. CIPROFLOXACIN 500MG [Suspect]
     Indication: DRUG THERAPY
     Dosage: 1 PILL TWICE DAILY TAKEN BY MOUTH
     Route: 048

REACTIONS (9)
  - Arthropathy [None]
  - Neuropathy peripheral [None]
  - Optic neuropathy [None]
  - Photosensitivity reaction [None]
  - Tendon disorder [None]
  - Insomnia [None]
  - Burning sensation [None]
  - Fatigue [None]
  - Hypoglycaemia [None]
